FAERS Safety Report 9251666 (Version 2)
Quarter: 2014Q1

REPORT INFORMATION
  Report Type: Spontaneous
  Country: US (occurrence: US)
  Receive Date: 20130424
  Receipt Date: 20140131
  Transmission Date: 20141002
  Serious: Yes (Other)
  Sender: FDA-Public Use
  Company Number: US-ASTRAZENECA-2013SE27412

PATIENT
  Age: 67 Year
  Sex: Female
  Weight: 72.6 kg

DRUGS (20)
  1. NEXIUM [Suspect]
     Indication: GASTROOESOPHAGEAL REFLUX DISEASE
     Route: 048
     Dates: start: 2005
  2. NEXIUM [Suspect]
     Indication: GASTROOESOPHAGEAL REFLUX DISEASE
     Route: 048
     Dates: start: 2005
  3. NEXIUM [Suspect]
     Indication: DYSPEPSIA
     Route: 048
     Dates: start: 2005
  4. NEXIUM [Suspect]
     Indication: GASTROOESOPHAGEAL REFLUX DISEASE
     Route: 048
     Dates: start: 20110310
  5. NEXIUM [Suspect]
     Indication: GASTROOESOPHAGEAL REFLUX DISEASE
     Route: 048
     Dates: start: 20110310
  6. NEXIUM [Suspect]
     Indication: DYSPEPSIA
     Route: 048
     Dates: start: 20110310
  7. DEXILANT [Concomitant]
     Dates: start: 2011
  8. PREVACID [Concomitant]
     Dates: start: 2000, end: 2004
  9. PROTONIX [Concomitant]
     Dates: start: 2004, end: 2005
  10. TUMS [Concomitant]
     Dosage: OTC AS NEEDED
  11. LEXAPRO [Concomitant]
  12. MIAPEX [Concomitant]
  13. GABAPENTIN [Concomitant]
     Dates: start: 20110628
  14. DOXYCYCLINE [Concomitant]
  15. CALCIUM [Concomitant]
  16. VITAMIN D [Concomitant]
  17. FEXOFENADINE [Concomitant]
     Dates: start: 20110310
  18. ZOLPIDEM TARTRATE [Concomitant]
     Dates: start: 20110603
  19. ZALEPLON [Concomitant]
     Route: 048
     Dates: start: 20120913
  20. RESTORIL [Concomitant]
     Indication: SLEEP DISORDER
     Dates: start: 20120627

REACTIONS (5)
  - Hip fracture [Unknown]
  - Pelvic fracture [Unknown]
  - Osteoporosis [Unknown]
  - Bone disorder [Unknown]
  - Arthritis [Unknown]
